FAERS Safety Report 16805580 (Version 2)
Quarter: 2020Q1

REPORT INFORMATION
  Report Type: Spontaneous
  Country: AU (occurrence: AU)
  Receive Date: 20190913
  Receipt Date: 20200331
  Transmission Date: 20200409
  Serious: Yes (Hospitalization, Other)
  Sender: FDA-Public Use
  Company Number: AU-SERVIER-S19002153

PATIENT

DRUGS (19)
  1. TN UNSPECIFIED [POSACONAZOLE] [Concomitant]
     Active Substance: POSACONAZOLE
     Indication: ANTIFUNGAL PROPHYLAXIS
     Dosage: 300 MG
     Route: 048
     Dates: start: 2018, end: 20180927
  2. TN UNSPECIFIED [AMPHOTERICIN B] [Concomitant]
     Active Substance: AMPHOTERICIN B
     Indication: ANTIFUNGAL PROPHYLAXIS
     Dosage: 325 MG, QD
     Route: 042
     Dates: start: 20181003
  3. TN UNSPECIFIED [DEXAMETHASONE] [Suspect]
     Active Substance: DEXAMETHASONE
     Indication: ACUTE LYMPHOCYTIC LEUKAEMIA
     Dosage: 40 MG
     Route: 048
     Dates: start: 20181018, end: 20181031
  4. TN UNSPECIFIED [SULFAMETHOXAZOLE\TRIMETHOPRIM] [Concomitant]
     Active Substance: SULFAMETHOXAZOLE\TRIMETHOPRIM
     Indication: PNEUMOCYSTIS JIROVECII PNEUMONIA
     Dosage: 160 MG
     Route: 048
     Dates: start: 20180816
  5. TN UNSPECIFIED [RANITIDINE HYDROCHLORIDE] [Concomitant]
     Active Substance: RANITIDINE HYDROCHLORIDE
     Indication: GASTROINTESTINAL DISORDER PROPHYLAXIS
     Dosage: 300 MG, QD
     Route: 048
     Dates: start: 20170112
  6. TN UNSPECIFIED (NAVITOCLAX) [Suspect]
     Active Substance: NAVITOCLAX
     Indication: ACUTE LYMPHOCYTIC LEUKAEMIA
     Dosage: 50 MG, QD
     Route: 048
     Dates: start: 20181012, end: 20181105
  7. TN UNSPECIFIED [VINCRISTINE] [Suspect]
     Active Substance: VINCRISTINE
     Dosage: 1.2 MG/M2, ONE DOSE
     Route: 042
     Dates: start: 20181024, end: 20181024
  8. TN UNSPECIFIED [GRANULOCYTE COLONY STIMULATING FACTOR] [Concomitant]
     Active Substance: GRANULOCYTE COLONY-STIMULATING FACTOR NOS
     Indication: NEUTROPENIA
     Dosage: 300 ?G, PRN
     Route: 058
     Dates: start: 20180823
  9. TN UNSPECIFIED [VINCRISTINE] [Suspect]
     Active Substance: VINCRISTINE
     Indication: ACUTE LYMPHOCYTIC LEUKAEMIA
     Dosage: 2 MG, ONE DOSE
     Route: 042
     Dates: start: 20181018, end: 20181018
  10. TN UNSPECIFIED (VENETOCLAX) [Suspect]
     Active Substance: VENETOCLAX
     Indication: ACUTE LYMPHOCYTIC LEUKAEMIA
     Dosage: UNK
     Route: 065
  11. TN UNSPECIFIED [ONDANSETRON HYDROCHLORIDE] [Concomitant]
     Active Substance: ONDANSETRON HYDROCHLORIDE
     Indication: NAUSEA
     Dosage: 8 MG, PRN
     Route: 048
     Dates: start: 20181010
  12. TN UNSPECIFIED [VALACICLOVIR] [Concomitant]
     Active Substance: VALACYCLOVIR HYDROCHLORIDE
     Indication: ANTIVIRAL PROPHYLAXIS
     Dosage: 500 MG, QD
     Route: 048
     Dates: start: 20170111
  13. TN UNSPECIFIED [VINCRISTINE] [Suspect]
     Active Substance: VINCRISTINE
     Dosage: 1.5 MG/M2, ONE DOSE
     Route: 042
     Dates: start: 20181021, end: 20181031
  14. TN UNSPECIFIED [ALLOPURINOL] [Concomitant]
     Active Substance: ALLOPURINOL
     Indication: TUMOUR LYSIS SYNDROME
     Dosage: 300 MG, QD
     Route: 048
     Dates: start: 20181009
  15. TN UNSPECIFIED [SPIRONOLACTONE] [Concomitant]
     Active Substance: SPIRONOLACTONE
     Indication: OEDEMA PERIPHERAL
     Dosage: 25 MG, QD
     Route: 048
     Dates: start: 20181010
  16. TN UNSPECIFIED [TRANEXAMIC ACID] [Concomitant]
     Active Substance: TRANEXAMIC ACID
     Indication: THROMBOCYTOPENIA
     Dosage: 1000 MG, QD
     Route: 048
     Dates: start: 20181103, end: 20181115
  17. PEGASPARGASE [Suspect]
     Active Substance: PEGASPARGASE
     Indication: ACUTE LYMPHOCYTIC LEUKAEMIA
     Dosage: 1875 IU, UNK
     Route: 042
     Dates: start: 20181018, end: 20181018
  18. TN UNSPECIFIED [SODIUM BICARBONATE] [Concomitant]
     Active Substance: SODIUM BICARBONATE
     Indication: MUCOSAL INFLAMMATION
     Dosage: 40 ML, QD
     Route: 061
     Dates: start: 20180816
  19. TN UNSPECIFIED [METOCLOPRAMIDE HYDROCHLORIDE] [Concomitant]
     Active Substance: METOCLOPRAMIDE HYDROCHLORIDE
     Indication: NAUSEA
     Dosage: 30 MG, QD
     Route: 048
     Dates: start: 20181010

REACTIONS (2)
  - Pancreatitis [Recovered/Resolved]
  - Drug-induced liver injury [Not Recovered/Not Resolved]

NARRATIVE: CASE EVENT DATE: 20181025
